FAERS Safety Report 8483011-9 (Version None)
Quarter: 2012Q3

REPORT INFORMATION
  Report Type: 
  Country: None (occurrence: None)
  Receive Date: 20120702
  Receipt Date: 20120628
  Transmission Date: 20120928
  Serious: Yes (Other)
  Sender: FDA-Public Use
  Company Number: US-PFIZER INC-2012156566

PATIENT
  Sex: Male

DRUGS (4)
  1. SPIRIVA [Suspect]
  2. PROTONIX [Suspect]
  3. XANAX [Suspect]
  4. LYRICA [Suspect]

REACTIONS (1)
  - AORTIC THROMBOSIS [None]
